FAERS Safety Report 9312353 (Version 3)
Quarter: 2013Q3

REPORT INFORMATION
  Report Type: Spontaneous
  Country: US (occurrence: US)
  Receive Date: 20130528
  Receipt Date: 20130913
  Transmission Date: 20140515
  Serious: Yes (Other)
  Sender: FDA-Public Use
  Company Number: US-JNJFOC-20130514035

PATIENT
  Sex: Male

DRUGS (2)
  1. RISPERDAL [Suspect]
     Indication: SCHIZOPHRENIA
     Route: 048
  2. RISPERDAL [Suspect]
     Indication: BIPOLAR DISORDER
     Route: 048

REACTIONS (7)
  - Pituitary tumour [Unknown]
  - Gynaecomastia [Recovering/Resolving]
  - Hyperprolactinaemia [Unknown]
  - Hyperlipidaemia [Not Recovered/Not Resolved]
  - Emotional distress [Unknown]
  - Drug ineffective [Unknown]
  - Obesity [Recovering/Resolving]
